FAERS Safety Report 4489880-1 (Version None)
Quarter: 2004Q4

REPORT INFORMATION
  Report Type: 
  Country: None (occurrence: None)
  Receive Date: 20041026
  Receipt Date: 20041019
  Transmission Date: 20050328
  Serious: Yes (Hospitalization)
  Sender: FDA-Public Use
  Company Number: 200412891GDS

PATIENT
  Age: 71 Year
  Sex: Male

DRUGS (2)
  1. ASPIRIN [Suspect]
     Indication: ATRIAL FIBRILLATION
     Dosage: 100 MG, TOTAL DAILY
  2. WARFARIN SODIUM [Suspect]
     Dosage: 2.5 MG TOTAL DAILY

REACTIONS (11)
  - ARTHRALGIA [None]
  - COAGULATION TIME PROLONGED [None]
  - FEELING ABNORMAL [None]
  - HAEMATOMA [None]
  - HYPOAESTHESIA [None]
  - IATROGENIC INJURY [None]
  - LOCAL SWELLING [None]
  - PAIN IN EXTREMITY [None]
  - PARALYSIS [None]
  - PLATELET COUNT DECREASED [None]
  - VASCULAR PSEUDOANEURYSM [None]
